FAERS Safety Report 8267762-7 (Version None)
Quarter: 2012Q2

REPORT INFORMATION
  Report Type: 
  Country: None (occurrence: None)
  Receive Date: 20120409
  Receipt Date: 20120402
  Transmission Date: 20120825
  Serious: Yes (Death, Other)
  Sender: FDA-Public Use
  Company Number: JP-SHIRE-ALL1-2012-01221

PATIENT
  Sex: Male

DRUGS (14)
  1. PRECIPITATED CALCIUM CARBONATE [Concomitant]
     Dosage: 3000 MG, UNKNOWN
     Route: 048
     Dates: start: 20090713
  2. NORVASC [Concomitant]
     Indication: PRODUCT USED FOR UNKNOWN INDICATION
     Dosage: 2.5 MG, UNKNOWN
     Route: 048
  3. LANTHANUM CARBONATE [Suspect]
     Dosage: 750 MG, OTHER (IMMEDIATELY AFTER MEALS)
     Route: 048
     Dates: start: 20090713, end: 20090729
  4. SEVELAMER HYDROCHLORIDE [Concomitant]
     Indication: HYPERPHOSPHATAEMIA
     Dosage: 3750 MG, UNKNOWN
     Route: 048
  5. OXAROL [Concomitant]
     Indication: PRODUCT USED FOR UNKNOWN INDICATION
     Dosage: 5 ?G, OTHER (3 TIMES PER WEEK)
     Route: 041
     Dates: start: 20080811, end: 20080814
  6. NESPO [Concomitant]
     Indication: NEPHROGENIC ANAEMIA
     Dosage: 60 ?G, 1X/WEEK
     Route: 041
  7. OXAROL [Concomitant]
     Dosage: 2.5 ?G, OTHER (3 TIMES PER WEEK)
     Route: 041
     Dates: start: 20080817
  8. PRECIPITATED CALCIUM CARBONATE [Concomitant]
     Indication: HYPERPHOSPHATAEMIA
     Dosage: 6000 MG, UNKNOWN
     Route: 048
     Dates: start: 20080213, end: 20090712
  9. LANTHANUM CARBONATE [Suspect]
     Dosage: 1500 MG, UNKNOWN
     Route: 048
     Dates: start: 20090730, end: 20090812
  10. ALLOPURINOL [Concomitant]
     Indication: PRODUCT USED FOR UNKNOWN INDICATION
     Dosage: 100 MG, UNKNOWN
     Route: 048
  11. ARGAMATE [Concomitant]
     Indication: PRODUCT USED FOR UNKNOWN INDICATION
     Dosage: 50 G, UNKNOWN
     Route: 048
  12. LANTHANUM CARBONATE [Suspect]
     Indication: HYPERPHOSPHATAEMIA
     Dosage: 2250 MG, UNKNOWN
     Route: 048
     Dates: start: 20090813, end: 20120206
  13. PRECIPITATED CALCIUM CARBONATE [Concomitant]
     Dosage: 4500 MG, UNKNOWN
     Route: 048
     Dates: start: 20100324
  14. OLMESARTAN MEDOXOMIL [Concomitant]
     Indication: PRODUCT USED FOR UNKNOWN INDICATION
     Dosage: 20 MG, UNKNOWN
     Route: 048

REACTIONS (2)
  - HYPOCALCAEMIA [None]
  - HYPERKALAEMIA [None]
